FAERS Safety Report 23889607 (Version 1)
Quarter: 2024Q2

REPORT INFORMATION
  Report Type: Spontaneous
  Country: US (occurrence: None)
  Receive Date: 20240523
  Receipt Date: 20240523
  Transmission Date: 20240716
  Serious: No
  Sender: FDA-Public Use
  Company Number: None

PATIENT

DRUGS (3)
  1. NOREPINEPHRINE BITARTRATE [Suspect]
     Active Substance: NOREPINEPHRINE BITARTRATE
  2. AMPHOTERICIN B [Suspect]
     Active Substance: AMPHOTERICIN B
     Dosage: OTHER STRENGTH : 5MG/KG;?
  3. PHENYLEPHRINE [Suspect]
     Active Substance: PHENYLEPHRINE HYDROCHLORIDE
     Dosage: OTHER STRENGTH : 50 MCG/MIN;?

REACTIONS (8)
  - Hypotension [None]
  - Tachycardia [None]
  - Product design issue [None]
  - Device issue [None]
  - Device delivery system issue [None]
  - Device use error [None]
  - Incorrect drug administration rate [None]
  - Incorrect dose administered [None]
